FAERS Safety Report 19284886 (Version 1)
Quarter: 2021Q2

REPORT INFORMATION
  Report Type: Spontaneous
  Country: US (occurrence: US)
  Receive Date: 20210521
  Receipt Date: 20210521
  Transmission Date: 20210717
  Serious: No
  Sender: FDA-Public Use
  Company Number: None

PATIENT
  Age: 51 Year
  Sex: Female
  Weight: 58.5 kg

DRUGS (1)
  1. TAMOXIFEN [Suspect]
     Active Substance: TAMOXIFEN
     Indication: NEOPLASM MALIGNANT

REACTIONS (2)
  - Altered state of consciousness [None]
  - Sleep disorder [None]

NARRATIVE: CASE EVENT DATE: 20210214
